FAERS Safety Report 14851538 (Version 15)
Quarter: 2022Q1

REPORT INFORMATION
  Report Type: Spontaneous
  Country: GR (occurrence: GR)
  Receive Date: 20180507
  Receipt Date: 20220218
  Transmission Date: 20220424
  Serious: Yes (Other)
  Sender: FDA-Public Use
  Company Number: GR-GLAXOSMITHKLINE-GR2018GSK044702

PATIENT
  Age: 58 Year
  Sex: Female

DRUGS (9)
  1. TENORMIN [Interacting]
     Active Substance: ATENOLOL
     Indication: Tachycardia
     Route: 048
  2. DICLOFENAC [Interacting]
     Active Substance: DICLOFENAC
     Indication: Myalgia
     Route: 065
     Dates: start: 20180312
  3. LONARID [Interacting]
     Active Substance: ACETAMINOPHEN\AMOBARBITAL\CAFFEINE\CODEINE PHOSPHATE
     Indication: Headache
     Route: 048
     Dates: start: 20180314
  4. ZOVIRAX [Interacting]
     Active Substance: ACYCLOVIR
     Indication: Herpes virus infection
     Dosage: 200.0MG UNKNOWN
     Route: 065
     Dates: start: 20180310, end: 20180320
  5. AMOXIL [Interacting]
     Active Substance: AMOXICILLIN
     Indication: Tooth abscess
     Dosage: UNK
     Route: 065
     Dates: start: 20180312, end: 20180318
  6. NORGESIC [Interacting]
     Active Substance: ASPIRIN\CAFFEINE\ORPHENADRINE CITRATE
     Indication: Myalgia
     Dosage: UNK
     Route: 065
     Dates: start: 20180312
  7. ACECLOFENAC [Interacting]
     Active Substance: ACECLOFENAC
     Indication: Myalgia
     Dosage: UNK
     Route: 065
     Dates: start: 20180312
  8. PANADOL EXTRA [Interacting]
     Active Substance: ACETAMINOPHEN\CAFFEINE
     Indication: Headache
     Dosage: UNK
     Route: 048
     Dates: start: 20180314
  9. ACYCLOVIR [Interacting]
     Active Substance: ACYCLOVIR
     Indication: Herpes virus infection
     Route: 065
     Dates: start: 20180310, end: 20180320

REACTIONS (5)
  - Drug interaction [Not Recovered/Not Resolved]
  - Vitreous detachment [Not Recovered/Not Resolved]
  - Vertigo [Recovered/Resolved]
  - Hypoaesthesia [Recovered/Resolved]
  - Vision blurred [Not Recovered/Not Resolved]

NARRATIVE: CASE EVENT DATE: 20180314
